FAERS Safety Report 9113168 (Version 1)
Quarter: 2013Q1

REPORT INFORMATION
  Report Type: Spontaneous
  Country: FR (occurrence: FR)
  Receive Date: 20130211
  Receipt Date: 20130211
  Transmission Date: 20140127
  Serious: Yes (Hospitalization)
  Sender: FDA-Public Use
  Company Number: FR-BAYER-2013-015513

PATIENT
  Age: 67 Year
  Sex: Male

DRUGS (7)
  1. CIFLOX [Suspect]
     Dosage: 400 MG, BID
     Route: 042
     Dates: start: 20121210, end: 20121213
  2. TARGOCID [Suspect]
     Dosage: 1400 MG, QD
     Route: 042
     Dates: start: 20121207, end: 20121213
  3. PIPERACILLIN W/TAZOBACTAM [Suspect]
     Dosage: 4 G, TID
     Route: 042
     Dates: start: 20121130, end: 20121213
  4. BIFONAZOLE [Suspect]
     Dosage: 1 DF, QD
     Route: 003
  5. PRAVADUAL [Concomitant]
     Dosage: UNK
  6. PLAVIX [Concomitant]
     Dosage: UNK
  7. COVERAM [Concomitant]
     Dosage: UNK

REACTIONS (1)
  - Macule [Recovering/Resolving]
